FAERS Safety Report 15671324 (Version 1)
Quarter: 2018Q4

REPORT INFORMATION
  Report Type: Spontaneous
  Country: GB (occurrence: GB)
  Receive Date: 20181129
  Receipt Date: 20181129
  Transmission Date: 20190205
  Serious: Yes (Hospitalization)
  Sender: FDA-Public Use
  Company Number: GB-TEVA-2018-GB-979849

PATIENT
  Age: 107 Year
  Sex: Female

DRUGS (9)
  1. CETIRIZINE [Suspect]
     Active Substance: CETIRIZINE HYDROCHLORIDE
     Dosage: 10 MILLIGRAM DAILY; ACUTE PRESCRIPTION NOT PRESCRIBED IN HOSPITAL
     Route: 048
     Dates: start: 20181012
  2. INDAPAMIDE. [Suspect]
     Active Substance: INDAPAMIDE
     Dosage: 1.5 MILLIGRAM DAILY;
     Route: 048
     Dates: end: 20181013
  3. HYDROCORTISONE. [Concomitant]
     Active Substance: HYDROCORTISONE
     Route: 065
  4. CLOPIDOGREL [Suspect]
     Active Substance: CLOPIDOGREL BISULFATE
     Dosage: SUSPENDED DURING ADMISSION. RESTARTED ON DISCHARGE.
     Route: 048
  5. CONOTRANE [Concomitant]
     Route: 065
  6. PARACETAMOL [Concomitant]
     Active Substance: ACETAMINOPHEN
     Route: 065
  7. NITRAZEPAM [Suspect]
     Active Substance: NITRAZEPAM
     Dosage: 10 MILLIGRAM DAILY; AT NIGHT. REDUCED TO 5MG AT NIGHT.?LONG-TERM USE.
     Route: 048
  8. FLUCLOXACILLIN [Concomitant]
     Active Substance: FLUCLOXACILLIN
     Dosage: 1000 MILLIGRAM DAILY;
     Route: 048
     Dates: start: 20181012, end: 20181016
  9. MICONAZOLE. [Concomitant]
     Active Substance: MICONAZOLE
     Route: 065

REACTIONS (4)
  - Hyponatraemia [Unknown]
  - Cellulitis [Unknown]
  - Haematoma [Recovered/Resolved]
  - Hypokalaemia [Recovered/Resolved]

NARRATIVE: CASE EVENT DATE: 20181013
